FAERS Safety Report 4476964-7 (Version None)
Quarter: 2004Q4

REPORT INFORMATION
  Report Type: 
  Country: None (occurrence: None)
  Receive Date: 20041018
  Receipt Date: 20041005
  Transmission Date: 20050328
  Serious: Yes (Other)
  Sender: FDA-Public Use
  Company Number: EMADSS2003000796

PATIENT
  Age: 51 Year
  Sex: Female

DRUGS (4)
  1. REMICADE [Suspect]
     Route: 042
  2. REMICADE [Suspect]
     Indication: PSORIATIC ARTHROPATHY
     Route: 042
  3. SEROXAT [Concomitant]
  4. IMOVANE [Concomitant]

REACTIONS (17)
  - ALANINE AMINOTRANSFERASE INCREASED [None]
  - AORTIC VALVE INCOMPETENCE [None]
  - ARTHRALGIA [None]
  - CARDIAC DISORDER [None]
  - DYSPNOEA [None]
  - FLUID RETENTION [None]
  - GENERALISED OEDEMA [None]
  - JOINT SWELLING [None]
  - LIVER DISORDER [None]
  - MITRAL VALVE INCOMPETENCE [None]
  - NAUSEA [None]
  - OEDEMA PERIPHERAL [None]
  - PAIN [None]
  - TRICUSPID VALVE INCOMPETENCE [None]
  - VOMITING [None]
  - WEIGHT INCREASED [None]
  - WHITE BLOOD CELLS URINE POSITIVE [None]
